FAERS Safety Report 8210466-7 (Version None)
Quarter: 2012Q1

REPORT INFORMATION
  Report Type: 
  Country: None (occurrence: None)
  Receive Date: 20120314
  Receipt Date: 20111215
  Transmission Date: 20120608
  Serious: Yes (Other)
  Sender: FDA-Public Use
  Company Number: US-ASTRAZENECA-2011SE75867

PATIENT
  Age: 56 Year
  Sex: Female

DRUGS (7)
  1. LETAIRIS [Suspect]
     Indication: SCLERODERMA
     Route: 048
     Dates: start: 20081202
  2. LETAIRIS [Suspect]
     Route: 048
  3. LETAIRIS [Suspect]
     Route: 048
  4. TYVASO [Suspect]
     Route: 065
     Dates: start: 20110801
  5. CYTOXAN [Suspect]
     Route: 065
  6. LETAIRIS [Suspect]
     Indication: PULMONARY HYPERTENSION
     Route: 048
     Dates: start: 20081202
  7. TOPROL-XL [Suspect]
     Route: 048

REACTIONS (1)
  - HYPOTENSION [None]
